FAERS Safety Report 24400309 (Version 1)
Quarter: 2024Q4

REPORT INFORMATION
  Report Type: Spontaneous
  Country: TR (occurrence: TR)
  Receive Date: 20241005
  Receipt Date: 20241005
  Transmission Date: 20250115
  Serious: Yes (Other)
  Sender: AMGEN
  Company Number: TR-AMGEN-TURSP2024193293

PATIENT
  Age: 41 Year
  Sex: Female

DRUGS (13)
  1. ADALIMUMAB [Suspect]
     Active Substance: ADALIMUMAB
     Indication: Arthritis enteropathic
     Dosage: 40 MILLIGRAM, Q2WK
     Route: 065
     Dates: start: 201706
  2. ADALIMUMAB [Suspect]
     Active Substance: ADALIMUMAB
     Indication: Pyoderma gangrenosum
     Dosage: 40 MILLIGRAM, Q2WK
     Route: 065
     Dates: start: 202006
  3. METHOTREXATE [Concomitant]
     Active Substance: METHOTREXATE
     Indication: Arthritis enteropathic
     Dosage: UNK
     Route: 065
  4. METHOTREXATE [Concomitant]
     Active Substance: METHOTREXATE
     Indication: Pyoderma gangrenosum
     Dosage: 20 MILLIGRAM, QWK
     Route: 058
  5. AZATHIOPRINE [Concomitant]
     Active Substance: AZATHIOPRINE
     Indication: Arthritis enteropathic
     Dosage: UNK
     Route: 065
  6. AZATHIOPRINE [Concomitant]
     Active Substance: AZATHIOPRINE
     Indication: Pyoderma gangrenosum
  7. SULFASALAZINE [Concomitant]
     Active Substance: SULFASALAZINE
     Indication: Arthritis enteropathic
     Dosage: 2 GRAM, QD
     Route: 065
     Dates: start: 201306
  8. SULFASALAZINE [Concomitant]
     Active Substance: SULFASALAZINE
     Indication: Pyoderma gangrenosum
  9. DICLOFENAC [Concomitant]
     Active Substance: DICLOFENAC
     Indication: Arthritis enteropathic
     Dosage: 75 MILLIGRAM, QD
     Route: 065
  10. DICLOFENAC [Concomitant]
     Active Substance: DICLOFENAC
     Indication: Pyoderma gangrenosum
  11. CYCLOSPORINE [Concomitant]
     Active Substance: CYCLOSPORINE
     Indication: Arthritis enteropathic
     Dosage: 2.5 MILLIGRAM/KILOGRAM, QD
     Route: 065
  12. INFLIXIMAB [Concomitant]
     Active Substance: INFLIXIMAB
     Indication: Arthritis enteropathic
     Dosage: 5 MILLIGRAM/KILOGRAM, Q6WK
     Route: 065
     Dates: start: 201401
  13. INFLIXIMAB [Concomitant]
     Active Substance: INFLIXIMAB
     Indication: Pyoderma gangrenosum

REACTIONS (5)
  - Pyoderma gangrenosum [Unknown]
  - Arthritis enteropathic [Unknown]
  - Therapeutic product effect incomplete [Unknown]
  - Drug effective for unapproved indication [Unknown]
  - Off label use [Unknown]
